FAERS Safety Report 5483451-6 (Version None)
Quarter: 2007Q4

REPORT INFORMATION
  Report Type: 
  Country: None (occurrence: None)
  Receive Date: 20071012
  Receipt Date: 20071002
  Transmission Date: 20080405
  Serious: Yes (Hospitalization)
  Sender: FDA-Public Use
  Company Number: IT-JNJFOC-20071001072

PATIENT
  Sex: Male

DRUGS (1)
  1. REMICADE [Suspect]
     Indication: ANKYLOSING SPONDYLITIS
     Dosage: TREATED FOR 2 YEARS
     Route: 042

REACTIONS (3)
  - DIRECT INFECTION TRANSMISSION [None]
  - HEPATITIS C [None]
  - THERAPEUTIC PRODUCT CONTAMINATION [None]
